FAERS Safety Report 9651049 (Version 2)
Quarter: 2015Q1

REPORT INFORMATION
  Report Type: Spontaneous
  Country: DK (occurrence: DK)
  Receive Date: 20131029
  Receipt Date: 20150210
  Transmission Date: 20150721
  Serious: Yes (Other)
  Sender: FDA-Public Use
  Company Number: PHHY2013DK120188

PATIENT
  Age: 57 Year
  Sex: Female

DRUGS (1)
  1. ZOMETA [Suspect]
     Active Substance: ZOLEDRONIC ACID
     Indication: METASTASES TO BONE
     Dosage: 4 MG/100 ML
     Route: 042
     Dates: start: 2008, end: 2013

REACTIONS (7)
  - Erythema [Unknown]
  - Swelling [Unknown]
  - Exposed bone in jaw [Unknown]
  - Osteonecrosis of jaw [Not Recovered/Not Resolved]
  - Pain [Unknown]
  - Osteomyelitis [Unknown]
  - Fistula [Unknown]

NARRATIVE: CASE EVENT DATE: 20130612
